FAERS Safety Report 7319931-8 (Version None)
Quarter: 2011Q1

REPORT INFORMATION
  Report Type: 
  Country: None (occurrence: None)
  Receive Date: 20110228
  Receipt Date: 20101209
  Transmission Date: 20110831
  Serious: Yes (Other)
  Sender: FDA-Public Use
  Company Number: A0899792A

PATIENT
  Age: 37 Year
  Sex: Female

DRUGS (3)
  1. FOLIC ACID [Concomitant]
  2. PRENATAL VITAMINS [Concomitant]
  3. LAMICTAL [Suspect]
     Indication: PARTIAL SEIZURES
     Dosage: 100MG TWICE PER DAY
     Route: 048
     Dates: start: 20060101

REACTIONS (2)
  - CONVULSION [None]
  - DRUG EXPOSURE DURING PREGNANCY [None]
